FAERS Safety Report 9366168 (Version 1)
Quarter: 2013Q2

REPORT INFORMATION
  Report Type: Spontaneous
  Country: US (occurrence: US)
  Receive Date: 20130625
  Receipt Date: 20130625
  Transmission Date: 20140414
  Serious: Yes (Death)
  Sender: FDA-Public Use
  Company Number: US-PFIZER INC-2013185799

PATIENT
  Age: 69 Year
  Sex: Male

DRUGS (1)
  1. VFEND [Suspect]
     Indication: ASPERGILLUS INFECTION
     Dosage: 250 MG, 2X/DAY
     Dates: start: 20120207

REACTIONS (2)
  - Disease progression [Fatal]
  - Bronchopulmonary aspergillosis [Fatal]
